FAERS Safety Report 12918828 (Version 2)
Quarter: 2017Q1

REPORT INFORMATION
  Report Type: Spontaneous
  Country: US (occurrence: US)
  Receive Date: 20161107
  Receipt Date: 20170213
  Transmission Date: 20170428
  Serious: Yes (Other)
  Sender: FDA-Public Use
  Company Number: US-ASTRAZENECA-2016SF15503

PATIENT
  Sex: Female
  Weight: 190 kg

DRUGS (9)
  1. CLONAZEPAM. [Concomitant]
     Active Substance: CLONAZEPAM
     Indication: SLEEP DISORDER
     Dosage: 3 TO 4 TIMES DAILY
     Route: 048
  2. CLONAZEPAM. [Concomitant]
     Active Substance: CLONAZEPAM
     Indication: SEDATION
     Dosage: 3 TO 4 TIMES DAILY
     Route: 048
  3. ROPINOL [Concomitant]
     Indication: TREMOR
     Route: 048
  4. PRISTIQ EXTENDED-RELEASE [Concomitant]
     Active Substance: DESVENLAFAXINE SUCCINATE
     Indication: SLEEP DISORDER
     Route: 048
  5. IMTREX [Concomitant]
     Indication: MIGRAINE
     Route: 048
  6. STEROID [Concomitant]
     Active Substance: UNSPECIFIED INGREDIENT
  7. RESTASIS [Concomitant]
     Active Substance: CYCLOSPORINE
     Dosage: 1 DROP EACH EYE THREE TIMES DAILY FOR EYES
  8. SEROQUEL [Suspect]
     Active Substance: QUETIAPINE FUMARATE
     Indication: SLEEP DISORDER
     Route: 048
     Dates: start: 2012
  9. OXYBUTININ [Concomitant]
     Active Substance: OXYBUTYNIN
     Indication: INCONTINENCE
     Route: 048

REACTIONS (9)
  - Restlessness [Unknown]
  - Neoplasm malignant [Unknown]
  - Mixed incontinence [Unknown]
  - Tremor [Unknown]
  - Muscle twitching [Unknown]
  - Feeling abnormal [Unknown]
  - Weight increased [Unknown]
  - Off label use [Unknown]
  - Product use issue [Unknown]
